FAERS Safety Report 9519309 (Version 1)
Quarter: 2013Q1

REPORT INFORMATION
  Report Type: Spontaneous
  Country: US (occurrence: None)
  Receive Date: 20130305
  Receipt Date: 20130305
  Transmission Date: 20140127
  Serious: Yes (Hospitalization, Other)
  Sender: FDA-Public Use
  Company Number: 163-21880-12061647

PATIENT
  Age: 50 Year
  Sex: Female

DRUGS (17)
  1. REVLIMID [Suspect]
     Indication: PLASMA CELL MYELOMA
     Dosage: 10 MG, 1 IN 1 D, PO
     Route: 048
     Dates: start: 201202
  2. FUROSEMIDE (FUROSEMIDE) (TABLETS) [Concomitant]
  3. ALBUTEROL (SALBUTAMOL) (EAR DROPS) [Concomitant]
  4. DOCUSATE SODIUM (DOCUSATE SODIUM) (CAPSULES) [Concomitant]
  5. IPRATROPIUM (IPRATROPIUM) (SOLUTION) [Concomitant]
  6. LORAZEPAM (LORAZEPAM) (TABLETS) [Concomitant]
  7. HYDROCODONE/ACETAMINOPHEN (REMEDEINE) (TABLETS) [Concomitant]
  8. OXYCODONE (OXYCODONE) (UNKNOWN) (OXYCODONE) [Concomitant]
  9. METHADONE (METHADONE) (10 MILLIGRAM, TABLETS) [Concomitant]
  10. MULTIVITAMINS (MULTIVITAMINS) (TABLETS) [Concomitant]
  11. CHOLECALCIFEROL (COLECALCIFEROL) (CAPSULES) [Concomitant]
  12. METOPROLOL (METOPROLOL) (TABLETS) [Concomitant]
  13. FERROUS SULFATE (FERROUS SULFATE) (TABLETS) [Concomitant]
  14. ASPIRIN EC (ACETYLSALICYLIC ACID) (UNKNOWN) [Concomitant]
  15. PROTONIX (TABLETS) [Concomitant]
  16. DULOXETINE (DULOXETINE) (CAPSULES) [Concomitant]
  17. GABAPENTIN (GABAPENTIN) (CAPSULES) [Concomitant]

REACTIONS (3)
  - Pneumonia [None]
  - Bone marrow failure [None]
  - Immunodeficiency [None]
